FAERS Safety Report 6692457-0 (Version None)
Quarter: 2010Q2

REPORT INFORMATION
  Report Type: 
  Country: None (occurrence: None)
  Receive Date: 20100422
  Receipt Date: 20100420
  Transmission Date: 20101027
  Serious: Yes (Hospitalization)
  Sender: FDA-Public Use
  Company Number: A0790897A

PATIENT
  Age: 56 Year
  Sex: Female
  Weight: 88.6 kg

DRUGS (10)
  1. AVANDIA [Suspect]
     Dosage: 8MG PER DAY
     Route: 048
     Dates: start: 20010601, end: 20050101
  2. AVANDAMET [Suspect]
     Indication: DIABETES MELLITUS
     Route: 048
  3. LIPITOR [Concomitant]
  4. DOXEPIN HCL [Concomitant]
  5. METFORMIN [Concomitant]
  6. INSULIN [Concomitant]
  7. LASIX [Concomitant]
  8. COREG [Concomitant]
  9. PROTONIX [Concomitant]
  10. METOPROLOL TARTRATE [Concomitant]

REACTIONS (3)
  - CARDIAC FAILURE CONGESTIVE [None]
  - CORONARY ARTERY DISEASE [None]
  - MYOCARDIAL INFARCTION [None]
